FAERS Safety Report 4733314-6 (Version None)
Quarter: 2005Q3

REPORT INFORMATION
  Report Type: 
  Country: None (occurrence: None)
  Receive Date: 20050802
  Receipt Date: 20050801
  Transmission Date: 20060218
  Serious: Yes (Hospitalization)
  Sender: FDA-Public Use
  Company Number: 005108

PATIENT
  Age: 25 Year
  Sex: Female
  Weight: 53.5 kg

DRUGS (5)
  1. NALTREXONE HCL [Suspect]
     Indication: SELF INJURIOUS BEHAVIOUR
     Dosage: 25.00 MG, QD, ORAL
     Route: 048
     Dates: start: 20050615, end: 20050627
  2. TRILEPTAL [Suspect]
     Indication: DEPRESSION
     Dosage: SEE IMAGE
     Route: 048
     Dates: start: 20050401, end: 20050701
  3. TRILEPTAL [Suspect]
     Indication: DEPRESSION
     Dosage: SEE IMAGE
     Route: 048
     Dates: start: 20050701
  4. LUNESTA [Suspect]
     Indication: INSOMNIA
     Dosage: 1.00 MG, QHS, ORAL
     Route: 048
     Dates: start: 20050614, end: 20050627
  5. LUNESTA [Suspect]
     Indication: INSOMNIA
     Dosage: 1.00 MG, QHS, ORAL
     Route: 048
     Dates: start: 20050729

REACTIONS (10)
  - BIPOLAR I DISORDER [None]
  - BIPOLAR II DISORDER [None]
  - CONDITION AGGRAVATED [None]
  - DEPRESSED LEVEL OF CONSCIOUSNESS [None]
  - DEPRESSION [None]
  - DRUG INTERACTION [None]
  - MYALGIA [None]
  - SKIN LACERATION [None]
  - SOMNOLENCE [None]
  - SUICIDAL IDEATION [None]
